FAERS Safety Report 8544867-4 (Version None)
Quarter: 2012Q3

REPORT INFORMATION
  Report Type: 
  Country: None (occurrence: None)
  Receive Date: 20120727
  Receipt Date: 20120724
  Transmission Date: 20120928
  Serious: Yes (Other)
  Sender: FDA-Public Use
  Company Number: JP-JNJFOC-20120513995

PATIENT
  Sex: Female
  Weight: 39 kg

DRUGS (17)
  1. SIMPONI [Suspect]
     Route: 058
     Dates: start: 20120229
  2. SIMPONI [Suspect]
     Route: 058
     Dates: start: 20120104
  3. METHOTREXATE [Concomitant]
     Indication: RHEUMATOID ARTHRITIS
     Dates: start: 20111108
  4. TELMISARTAN [Concomitant]
     Route: 048
  5. SIMPONI [Suspect]
     Route: 058
     Dates: start: 20120328
  6. PREDNISOLONE [Concomitant]
     Indication: RHEUMATOID ARTHRITIS
     Route: 048
  7. NIFEDIPINE [Concomitant]
     Route: 048
  8. LANSOPRAZOLE [Concomitant]
     Indication: PROPHYLAXIS
     Route: 048
  9. SITAGLIPTIN PHOSPHATE [Concomitant]
     Route: 048
  10. BUCILLAMINE [Concomitant]
     Indication: RHEUMATOID ARTHRITIS
     Route: 048
  11. CAMOSTAT MESILATE [Concomitant]
     Indication: PROPHYLAXIS
     Route: 048
  12. ALFACALCIDOL [Concomitant]
     Indication: PROPHYLAXIS
     Route: 048
  13. SIMPONI [Suspect]
     Indication: RHEUMATOID ARTHRITIS
     Route: 058
     Dates: start: 20111108
  14. SIMPONI [Suspect]
     Route: 058
     Dates: start: 20111205
  15. SIMPONI [Suspect]
     Route: 058
     Dates: start: 20120201
  16. SIMPONI [Suspect]
     Route: 058
     Dates: start: 20120425
  17. FENOFIBRATE [Concomitant]
     Route: 048

REACTIONS (1)
  - RENAL DISORDER [None]
